FAERS Safety Report 9385198 (Version 2)
Quarter: 2013Q2

REPORT INFORMATION
  Report Type: Spontaneous
  Country: US (occurrence: None)
  Receive Date: 20130628
  Receipt Date: 20130628
  Transmission Date: 20140414
  Serious: Yes (Other)
  Sender: FDA-Public Use
  Company Number: 2012SGN00569

PATIENT
  Age: 36 Year
  Sex: Female

DRUGS (4)
  1. ADCETRIS [Suspect]
     Indication: ANAPLASTIC LARGE-CELL LYMPHOMA
  2. CORTICOSTEROIDS [Concomitant]
  3. ACETAMINOPHEN [Concomitant]
  4. DIPHENHYDRAMINE [Concomitant]

REACTIONS (5)
  - Convulsion [None]
  - Anaphylactic reaction [None]
  - Nausea [None]
  - Syncope [None]
  - Loss of consciousness [None]
